FAERS Safety Report 5406138-4 (Version None)
Quarter: 2007Q3

REPORT INFORMATION
  Report Type: 
  Country: None (occurrence: None)
  Receive Date: 20070802
  Receipt Date: 20070802
  Transmission Date: 20080115
  Serious: Yes (Life-Threatening, Other)
  Sender: FDA-Public Use
  Company Number: None

PATIENT
  Age: 59 Year
  Sex: Female
  Weight: 104.3273 kg

DRUGS (1)
  1. ACTOS [Suspect]
     Indication: DIABETES MELLITUS
     Dosage: 1 TABLET DAILY EVERY DAY PO
     Route: 048
     Dates: start: 20040601, end: 20070401

REACTIONS (1)
  - HEPATIC FUNCTION ABNORMAL [None]
